FAERS Safety Report 8512327-2 (Version None)
Quarter: 2012Q3

REPORT INFORMATION
  Report Type: 
  Country: None (occurrence: None)
  Receive Date: 20120716
  Receipt Date: 20120712
  Transmission Date: 20120928
  Serious: Yes (Hospitalization)
  Sender: FDA-Public Use
  Company Number: US-ROCHE-1087613

PATIENT
  Age: 54 Year
  Sex: Male

DRUGS (2)
  1. MABTHERA [Suspect]
     Indication: GLOMERULONEPHRITIS MEMBRANOUS
     Dates: start: 20110701
  2. CYCLOSPORINE [Suspect]
     Indication: GLOMERULONEPHRITIS MEMBRANOUS
     Route: 048

REACTIONS (1)
  - GLOMERULONEPHRITIS MEMBRANOUS [None]
